FAERS Safety Report 7202567-7 (Version None)
Quarter: 2010Q4

REPORT INFORMATION
  Report Type: 
  Country: None (occurrence: None)
  Receive Date: 20101229
  Receipt Date: 20101227
  Transmission Date: 20110411
  Serious: Yes (Life-Threatening, Hospitalization, Other)
  Sender: FDA-Public Use
  Company Number: ES-MERCK-1012ESP00017

PATIENT
  Age: 56 Year
  Sex: Male
  Weight: 50 kg

DRUGS (6)
  1. CANCIDAS [Suspect]
     Indication: CANDIDIASIS
     Route: 042
     Dates: start: 20101129, end: 20101129
  2. CANCIDAS [Suspect]
     Route: 042
     Dates: start: 20101130, end: 20101217
  3. FLUDARABINE PHOSPHATE [Concomitant]
     Indication: ACUTE MYELOID LEUKAEMIA
     Route: 065
     Dates: start: 20101111
  4. CYTARABINE [Concomitant]
     Indication: ACUTE MYELOID LEUKAEMIA
     Route: 065
     Dates: start: 20101111
  5. GRANULOCYTE COLONY STIMULATING FACTOR (UNSPECIFIED) [Concomitant]
     Indication: ACUTE MYELOID LEUKAEMIA
     Route: 065
     Dates: start: 20101111
  6. IDARUBICIN HYDROCHLORIDE [Concomitant]
     Indication: ACUTE MYELOID LEUKAEMIA
     Route: 065
     Dates: start: 20101111

REACTIONS (4)
  - ACUTE MYELOID LEUKAEMIA [None]
  - BACTERAEMIA [None]
  - BRONCHOPULMONARY ASPERGILLOSIS [None]
  - FEBRILE NEUTROPENIA [None]
